FAERS Safety Report 14555274 (Version 1)
Quarter: 2018Q1

REPORT INFORMATION
  Report Type: Spontaneous
  Country: US (occurrence: US)
  Receive Date: 20180219
  Receipt Date: 20180219
  Transmission Date: 20180509
  Serious: Yes (Other)
  Sender: FDA-Public Use
  Company Number: None

PATIENT
  Sex: Male
  Weight: 85.5 kg

DRUGS (5)
  1. HUMALOG [Concomitant]
     Active Substance: INSULIN LISPRO
  2. LISINOPRIL. [Concomitant]
     Active Substance: LISINOPRIL
  3. VITAMIN D [Concomitant]
     Active Substance: CHOLECALCIFEROL
  4. LANTUS INSULIN GLARGINE [Suspect]
     Active Substance: INSULIN GLARGINE
     Indication: DIABETES MELLITUS
     Dosage: QUANTITY:1 10 ML VIALS;OTHER ROUTE:INJECTED INTO FAT?
     Dates: start: 20020101, end: 20180218
  5. MULTIVITAMIN [Concomitant]
     Active Substance: VITAMINS

REACTIONS (8)
  - Fall [None]
  - Blood glucose increased [None]
  - Incorrect dose administered [None]
  - Product quality issue [None]
  - Seizure [None]
  - Blood glucose decreased [None]
  - Fear [None]
  - Loss of consciousness [None]

NARRATIVE: CASE EVENT DATE: 20180216
